FAERS Safety Report 19244894 (Version 2)
Quarter: 2021Q2

REPORT INFORMATION
  Report Type: Report from Study
  Country: US (occurrence: US)
  Receive Date: 20210511
  Receipt Date: 20210601
  Transmission Date: 20210717
  Serious: Yes (Hospitalization)
  Sender: FDA-Public Use
  Company Number: US-MYLANLABS-2021M1027220

PATIENT
  Sex: Male
  Weight: 88 kg

DRUGS (7)
  1. INVEGA SUSTENNA [Concomitant]
     Active Substance: PALIPERIDONE PALMITATE
     Dosage: 156 MILLIGRAM, MONTHLY
     Route: 030
  2. LIPITOR [Concomitant]
     Active Substance: ATORVASTATIN CALCIUM
     Dosage: 20 MILLIGRAM, HS
  3. MIRALAX [Concomitant]
     Active Substance: POLYETHYLENE GLYCOL 3350
     Dosage: UNK
  4. METHAMPHETAMINE                    /00069101/ [Concomitant]
     Active Substance: METHAMPHETAMINE
     Dosage: UNK
  5. CLOZAPINE. [Suspect]
     Active Substance: CLOZAPINE
     Indication: PSYCHOTIC DISORDER
     Dosage: 100 MILLIGRAM, HS
     Dates: start: 201704
  6. ABILIFY [Concomitant]
     Active Substance: ARIPIPRAZOLE
     Dosage: 2 MILLIGRAM, AM
  7. PRILOSEC [Concomitant]
     Active Substance: OMEPRAZOLE MAGNESIUM
     Dosage: 20 MILLIGRAM, AM

REACTIONS (5)
  - Hallucination, visual [Unknown]
  - Psychotic disorder [Unknown]
  - Hallucination, auditory [Unknown]
  - Sedation [Unknown]
  - Intentional product use issue [Unknown]
